FAERS Safety Report 11981611 (Version 1)
Quarter: 2016Q1

REPORT INFORMATION
  Report Type: Spontaneous
  Country: US (occurrence: None)
  Receive Date: 20160129
  Receipt Date: 20160129
  Transmission Date: 20160526
  Serious: No
  Sender: FDA-Public Use
  Company Number: None

PATIENT
  Age: 61 Year
  Sex: Female

DRUGS (1)
  1. FORTEO [Suspect]
     Active Substance: TERIPARATIDE
     Indication: OSTEOPOROSIS
     Dosage: INJECT UNDER THE SKIN
     Route: 058
     Dates: start: 20151125

REACTIONS (3)
  - Pain in extremity [None]
  - Arthralgia [None]
  - No therapeutic response [None]

NARRATIVE: CASE EVENT DATE: 2016
